FAERS Safety Report 23188154 (Version 8)
Quarter: 2024Q3

REPORT INFORMATION
  Report Type: Spontaneous
  Country: US (occurrence: US)
  Receive Date: 20231115
  Receipt Date: 20240829
  Transmission Date: 20241016
  Serious: Yes (Other)
  Sender: PFIZER
  Company Number: US-PFIZER INC-PV202300182339

PATIENT
  Age: 79 Year
  Sex: Female
  Weight: 89.27 kg

DRUGS (3)
  1. IBRANCE [Suspect]
     Active Substance: PALBOCICLIB
     Indication: Breast cancer metastatic
     Dosage: 125 MG, ONCE DAILY FOR 21 DAYS ON AND ONE WEEK OFF
     Route: 048
  2. IBRANCE [Suspect]
     Active Substance: PALBOCICLIB
     Dosage: UNK
     Dates: start: 202309
  3. IBRANCE [Suspect]
     Active Substance: PALBOCICLIB
     Dosage: 125 MG TABLETS, DAILY, 21 DAYS ON, 7 DAYS OFF

REACTIONS (12)
  - Myocardial infarction [Unknown]
  - Cataract [Unknown]
  - Cerebrovascular accident [Unknown]
  - Feeling abnormal [Unknown]
  - Arterial occlusive disease [Unknown]
  - Neoplasm recurrence [Not Recovered/Not Resolved]
  - Malaise [Unknown]
  - Cerebral disorder [Unknown]
  - Lung disorder [Unknown]
  - Liver disorder [Unknown]
  - Bone disorder [Unknown]
  - Off label use [Unknown]
